FAERS Safety Report 15711524 (Version 5)
Quarter: 2019Q3

REPORT INFORMATION
  Report Type: Report from Study
  Country: BR (occurrence: BR)
  Receive Date: 20181211
  Receipt Date: 20190711
  Transmission Date: 20191004
  Serious: Yes (Other)
  Sender: FDA-Public Use
  Company Number: BR-ROCHE-2226935

PATIENT
  Age: 17 Year
  Sex: Female
  Weight: 47 kg

DRUGS (13)
  1. XOLAIR [Suspect]
     Active Substance: OMALIZUMAB
     Indication: ASTHMA
     Dosage: 450 MG (3 AMPOULES OF 150 MG)
     Route: 058
     Dates: start: 20181109
  2. XOLAIR [Suspect]
     Active Substance: OMALIZUMAB
     Dosage: 450 MG, EVERY 14 DAYS
     Route: 058
     Dates: start: 20181123, end: 20181123
  3. XOLAIR [Suspect]
     Active Substance: OMALIZUMAB
     Dosage: UNK
     Route: 058
     Dates: start: 201812
  4. BUSONID [Suspect]
     Active Substance: BUDESONIDE
     Indication: ASTHMA
     Route: 045
     Dates: start: 2016
  5. PIEMONTE [Suspect]
     Active Substance: MONTELUKAST SODIUM
     Indication: ASTHMA
  6. ALENIA (BUDESONIDE\FORMOTEROL FUMARATE) [Suspect]
     Active Substance: BUDESONIDE\FORMOTEROL FUMARATE
     Indication: RHINITIS
  7. LORATADINE. [Suspect]
     Active Substance: LORATADINE
     Indication: ASTHMA
     Route: 048
     Dates: start: 2016
  8. MIOSAN [Suspect]
     Active Substance: CYCLOBENZAPRINE
     Indication: PRODUCT USED FOR UNKNOWN INDICATION
     Route: 065
  9. ALENIA (BUDESONIDE\FORMOTEROL FUMARATE) [Suspect]
     Active Substance: BUDESONIDE\FORMOTEROL FUMARATE
     Indication: ASTHMA
     Route: 048
     Dates: start: 2016
  10. DIVIDOL [VIMINOL HYDROXYBENZOATE] [Suspect]
     Active Substance: VIMINOL P-HYDROXYBENZOATE
     Indication: PRODUCT USED FOR UNKNOWN INDICATION
     Route: 065
  11. BUSONID [Suspect]
     Active Substance: BUDESONIDE
     Indication: RHINITIS
  12. LORATADINE. [Suspect]
     Active Substance: LORATADINE
     Indication: RHINITIS
  13. PIEMONTE [Suspect]
     Active Substance: MONTELUKAST SODIUM
     Indication: RHINITIS
     Route: 048
     Dates: start: 2016

REACTIONS (30)
  - Throat irritation [Recovered/Resolved]
  - Mobility decreased [Not Recovered/Not Resolved]
  - Angioedema [Recovering/Resolving]
  - Eyelid oedema [Recovered/Resolved]
  - Pruritus [Recovered/Resolved]
  - Abdominal pain upper [Not Recovered/Not Resolved]
  - Asthma [Recovering/Resolving]
  - Eye pruritus [Recovered/Resolved]
  - Hypersensitivity [Unknown]
  - Crying [Unknown]
  - Lip oedema [Recovering/Resolving]
  - Arthralgia [Recovered/Resolved]
  - Abdominal pain lower [Recovered/Resolved]
  - Paraesthesia [Recovered/Resolved]
  - Abdominal pain [Recovered/Resolved]
  - Eye swelling [Recovering/Resolving]
  - Eye oedema [Recovering/Resolving]
  - Myalgia [Unknown]
  - Hypoaesthesia [Recovering/Resolving]
  - Joint swelling [Recovered/Resolved]
  - Constipation [Unknown]
  - Gait disturbance [Unknown]
  - Weight decreased [Not Recovered/Not Resolved]
  - Eye pain [Recovered/Resolved]
  - Pharyngeal erythema [Recovered/Resolved]
  - Asthmatic crisis [Recovered/Resolved]
  - Pain [Recovered/Resolved]
  - Pyrexia [Recovered/Resolved]
  - Hyperaemia [Unknown]
  - Musculoskeletal pain [Unknown]

NARRATIVE: CASE EVENT DATE: 20181109
